FAERS Safety Report 7983097-1 (Version None)
Quarter: 2011Q4

REPORT INFORMATION
  Report Type: 
  Country: None (occurrence: None)
  Receive Date: 20111215
  Receipt Date: 20111213
  Transmission Date: 20120403
  Serious: Yes (Death)
  Sender: FDA-Public Use
  Company Number: FR-B.I. PHARMACEUTICALS,INC./RIDGEFIELD-2011-FF-01087FF

PATIENT
  Sex: Male

DRUGS (5)
  1. CORDARONE [Concomitant]
  2. ATRIOVENTRICULAR BLOCK STIMULATOR [Concomitant]
     Dates: start: 20090101
  3. FUROSEMIDE [Concomitant]
  4. PROSCAR [Concomitant]
  5. PRADAXA [Suspect]
     Indication: ATRIAL FIBRILLATION
     Dosage: 150 MG
     Route: 048
     Dates: start: 20101106, end: 20111025

REACTIONS (1)
  - PERICARDIAL HAEMORRHAGE [None]
